FAERS Safety Report 8991371 (Version 1)
Quarter: 2012Q4

REPORT INFORMATION
  Report Type: 
  Country: US (occurrence: US)
  Receive Date: 20121229
  Receipt Date: 20121229
  Transmission Date: 20130627
  Serious: No
  Sender: FDA-Public Use
  Company Number: US-009507513-1212USA010791

PATIENT
  Age: 59 Year
  Sex: Female
  Weight: 101.59 kg

DRUGS (8)
  1. VICTRELIS [Suspect]
     Dosage: 4 DF, tid
     Route: 048
     Dates: end: 20121203
  2. RIBAVIRIN [Suspect]
  3. PEGASYS [Suspect]
     Dosage: 180 Microgram, UNK
  4. VITAMINS (UNSPECIFIED) [Concomitant]
  5. VITAMIN E [Concomitant]
     Dosage: 1000 units
  6. TYLENOL [Concomitant]
  7. DEXILANT [Concomitant]
  8. ADVIL [Concomitant]

REACTIONS (5)
  - Hallucination [Unknown]
  - Pneumonia [Unknown]
  - Pain in extremity [Unknown]
  - Rash generalised [Unknown]
  - Arthralgia [Unknown]
